FAERS Safety Report 8265175-5 (Version None)
Quarter: 2012Q2

REPORT INFORMATION
  Report Type: 
  Country: None (occurrence: None)
  Receive Date: 20120406
  Receipt Date: 20120327
  Transmission Date: 20120825
  Serious: Yes (Disabling)
  Sender: FDA-Public Use
  Company Number: GB-ROCHE-1053075

PATIENT
  Age: 71 Year
  Sex: Male
  Weight: 67.8 kg

DRUGS (7)
  1. CAPECITABINE [Suspect]
     Indication: COLON CANCER
     Route: 048
     Dates: start: 20110509, end: 20110908
  2. MUCODYNE [Concomitant]
  3. ALBUTEROL [Concomitant]
  4. FLUTICASONE PROPIONATE/SALMETEROL [Concomitant]
  5. DOMPERIDONE [Concomitant]
  6. SPIRIVA [Concomitant]
  7. OMEPRAZOLE [Concomitant]

REACTIONS (4)
  - INTERSTITIAL LUNG DISEASE [None]
  - MOBILITY DECREASED [None]
  - FORCED EXPIRATORY VOLUME DECREASED [None]
  - VITAL CAPACITY DECREASED [None]
